FAERS Safety Report 22158753 (Version 9)
Quarter: 2024Q4

REPORT INFORMATION
  Report Type: Spontaneous
  Country: JP (occurrence: JP)
  Receive Date: 20230331
  Receipt Date: 20241128
  Transmission Date: 20250115
  Serious: Yes (Death, Hospitalization, Other)
  Sender: BRISTOL-MYERS SQUIBB COMPANY
  Company Number: JP-BRISTOL-MYERS SQUIBB COMPANY-2023-044446

PATIENT
  Age: 46 Year
  Sex: Male

DRUGS (2)
  1. YERVOY [Suspect]
     Active Substance: IPILIMUMAB
     Indication: Malignant melanoma
     Route: 041
     Dates: start: 20230313
  2. OPDIVO [Suspect]
     Active Substance: NIVOLUMAB
     Indication: Malignant melanoma
     Route: 041
     Dates: start: 20230313

REACTIONS (6)
  - Meningitis aseptic [Recovered/Resolved]
  - Malaise [Unknown]
  - Depressed level of consciousness [Unknown]
  - Hepatic function abnormal [Recovered/Resolved]
  - Malignant neoplasm progression [Fatal]
  - Immune-mediated hepatitis [Recovering/Resolving]

NARRATIVE: CASE EVENT DATE: 20230317
